FAERS Safety Report 6779854-X (Version None)
Quarter: 2010Q2

REPORT INFORMATION
  Report Type: 
  Country: None (occurrence: None)
  Receive Date: 20100618
  Receipt Date: 20100610
  Transmission Date: 20101027
  Serious: Yes (Other)
  Sender: FDA-Public Use
  Company Number: IL-AMGEN-QUU417407

PATIENT
  Age: 37 Year
  Sex: Male

DRUGS (4)
  1. NEULASTIM [Suspect]
     Indication: CHEMOTHERAPY
     Route: 058
     Dates: start: 20100604, end: 20100604
  2. PRAMIN [Concomitant]
  3. ZOFRAN [Concomitant]
  4. UNSPECIFIED ANTINEOPLASTIC AGENT [Concomitant]

REACTIONS (1)
  - ANAPHYLACTIC SHOCK [None]
